FAERS Safety Report 19348460 (Version 1)
Quarter: 2021Q2

REPORT INFORMATION
  Report Type: Spontaneous
  Country: US (occurrence: US)
  Receive Date: 20210528
  Receipt Date: 20210528
  Transmission Date: 20210717
  Serious: Yes (Other)
  Sender: FDA-Public Use
  Company Number: None

PATIENT
  Age: 38 Year
  Sex: Female
  Weight: 76.5 kg

DRUGS (1)
  1. NP THYROID [Suspect]
     Active Substance: LEVOTHYROXINE\LIOTHYRONINE
     Indication: HYPOTHYROIDISM
     Dosage: ?          QUANTITY:1 TABLET(S);?
     Route: 048
     Dates: start: 20130115, end: 20200520

REACTIONS (9)
  - Neuropathy peripheral [None]
  - Heart rate decreased [None]
  - Recalled product administered [None]
  - Fatigue [None]
  - Dry skin [None]
  - Weight increased [None]
  - Product formulation issue [None]
  - Depression [None]
  - Constipation [None]
